FAERS Safety Report 5324415-2 (Version None)
Quarter: 2007Q2

REPORT INFORMATION
  Report Type: 
  Country: None (occurrence: None)
  Receive Date: 20070509
  Receipt Date: 20070424
  Transmission Date: 20071010
  Serious: Yes (Hospitalization)
  Sender: FDA-Public Use
  Company Number: 2007RR-07145

PATIENT
  Age: 50 Year
  Sex: Male

DRUGS (9)
  1. ACETAMINOPHEN [Suspect]
     Indication: ANALGESIC EFFECT
     Dosage: 1 G, QID, ORAL
     Route: 048
  2. FLUCLOXACILLIN(FLUCLOXACILLIN) UNKNOWN [Suspect]
     Dosage: SEE IMAGE
     Route: 042
  3. PHENYTOIN [Concomitant]
  4. PHENOBARBITONE [Concomitant]
  5. CARBAMAZEPINE [Concomitant]
  6. STREPTOKINASE [Concomitant]
  7. FENTANYL [Concomitant]
  8. VANCOMYCIN HYDROCHLORIDE [Concomitant]
  9. BICARBONATE [Concomitant]

REACTIONS (16)
  - ALTERED STATE OF CONSCIOUSNESS [None]
  - ANION GAP INCREASED [None]
  - BARRETT'S OESOPHAGUS [None]
  - EMPYEMA [None]
  - GLOMERULONEPHRITIS PROLIFERATIVE [None]
  - HAEMORRHAGE [None]
  - HIATUS HERNIA [None]
  - LUNG NEOPLASM [None]
  - METABOLIC ACIDOSIS [None]
  - PLEURAL DECORTICATION [None]
  - PLEURAL EFFUSION [None]
  - PLEURISY [None]
  - PYROGLUTAMATE INCREASED [None]
  - RENAL CYST [None]
  - RENAL IMPAIRMENT [None]
  - VOMITING [None]
